FAERS Safety Report 5673789-1 (Version None)
Quarter: 2008Q1

REPORT INFORMATION
  Report Type: 
  Country: None (occurrence: None)
  Receive Date: 20080319
  Receipt Date: 20080307
  Transmission Date: 20080703
  Serious: Yes (Other)
  Sender: FDA-Public Use
  Company Number: US-PFIZER INC-2008021934

PATIENT
  Sex: Female
  Weight: 89.09 kg

DRUGS (2)
  1. DILANTIN [Suspect]
     Indication: GRAND MAL CONVULSION
  2. SYNTHROID [Concomitant]

REACTIONS (2)
  - BLOOD PRESSURE DECREASED [None]
  - HEPATIC ENZYME INCREASED [None]
